FAERS Safety Report 10388823 (Version 1)
Quarter: 2014Q1

REPORT INFORMATION
  Report Type: Spontaneous
  Country: US (occurrence: None)
  Receive Date: 20140306
  Receipt Date: 20140306
  Transmission Date: 20141002
  Serious: Yes (Hospitalization, Other)
  Sender: FDA-Public Use
  Company Number: 163-21880-13104953

PATIENT
  Age: 75 Year
  Sex: Male

DRUGS (2)
  1. REVLIMID (LENALIDOMIDE) (2.5 MILLIGRAM, CAPSULES) [Suspect]
     Indication: CHRONIC LYMPHOCYTIC LEUKAEMIA
     Route: 048
     Dates: start: 201307
  2. OXYGEN [Concomitant]

REACTIONS (6)
  - Haemoglobin decreased [None]
  - Platelet count decreased [None]
  - Infection [None]
  - Full blood count decreased [None]
  - Pyrexia [None]
  - Vomiting [None]
